FAERS Safety Report 5858591-X (Version None)
Quarter: 2008Q3

REPORT INFORMATION
  Report Type: 
  Country: None (occurrence: None)
  Receive Date: 20080818
  Receipt Date: 20080716
  Transmission Date: 20090109
  Serious: No
  Sender: FDA-Public Use
  Company Number: WAES 0807USA03232

PATIENT
  Age: 67 Year
  Sex: Female

DRUGS (7)
  1. JANUVIA [Suspect]
     Indication: TYPE 2 DIABETES MELLITUS
     Dosage: 100 MG/DAILY/PO ; DAILY/PO
     Route: 048
     Dates: start: 20070701, end: 20080501
  2. JANUVIA [Suspect]
     Indication: TYPE 2 DIABETES MELLITUS
     Dosage: 100 MG/DAILY/PO ; DAILY/PO
     Route: 048
     Dates: start: 20080501
  3. MICARDIS [Concomitant]
  4. TOPROL-XL [Concomitant]
  5. ASPIRIN [Concomitant]
  6. INSULIN [Concomitant]
  7. LISINOPRIL [Concomitant]

REACTIONS (5)
  - BLOOD GLUCOSE DECREASED [None]
  - NAUSEA [None]
  - OROPHARYNGEAL PAIN [None]
  - RHINORRHOEA [None]
  - WRONG TECHNIQUE IN DRUG USAGE PROCESS [None]
